FAERS Safety Report 6804557-2 (Version None)
Quarter: 2010Q2

REPORT INFORMATION
  Report Type: 
  Country: None (occurrence: None)
  Receive Date: 20100628
  Receipt Date: 20070424
  Transmission Date: 20101027
  Serious: No
  Sender: FDA-Public Use
  Company Number: US-PFIZER INC-2007033938

PATIENT
  Sex: Female

DRUGS (3)
  1. GEODON [Suspect]
     Indication: MANIA
     Dosage: 5 EVERY 1 DAYS
     Dates: start: 20070401
  2. PRILOSEC [Concomitant]
  3. XENICAL [Concomitant]

REACTIONS (7)
  - ACTIVITIES OF DAILY LIVING IMPAIRED [None]
  - ASTHENIA [None]
  - DRY MOUTH [None]
  - DYSPNOEA [None]
  - FATIGUE [None]
  - INCREASED APPETITE [None]
  - THIRST [None]
